FAERS Safety Report 7134837-5 (Version None)
Quarter: 2010Q4

REPORT INFORMATION
  Report Type: 
  Country: None (occurrence: None)
  Receive Date: 20101203
  Receipt Date: 20101129
  Transmission Date: 20110411
  Serious: Yes (Death)
  Sender: FDA-Public Use
  Company Number: NL-CELGENEUS-114-21880-10081492

PATIENT
  Sex: Male
  Weight: 70 kg

DRUGS (2)
  1. REVLIMID [Suspect]
     Indication: MULTIPLE MYELOMA
     Route: 048
     Dates: start: 20091205
  2. REVLIMID [Suspect]
     Route: 048
     Dates: start: 20100717, end: 20100804

REACTIONS (1)
  - SEPSIS [None]
